FAERS Safety Report 6168467-9 (Version None)
Quarter: 2009Q2

REPORT INFORMATION
  Report Type: 
  Country: None (occurrence: None)
  Receive Date: 20090427
  Receipt Date: 20090417
  Transmission Date: 20091009
  Serious: Yes (Hospitalization, Congenital Anomaly)
  Sender: FDA-Public Use
  Company Number: A0768011A

PATIENT
  Sex: Male

DRUGS (3)
  1. PAXIL CR [Suspect]
     Indication: DRUG USE FOR UNKNOWN INDICATION
  2. VITAMIN TAB [Concomitant]
  3. PREVACID [Concomitant]

REACTIONS (8)
  - BUNDLE BRANCH BLOCK RIGHT [None]
  - DRUG EXPOSURE DURING PREGNANCY [None]
  - FALLOT'S TETRALOGY [None]
  - MULTIPLE CONGENITAL ABNORMALITIES [None]
  - POSTOPERATIVE THORACIC PROCEDURE COMPLICATION [None]
  - PULMONARY ARTERY STENOSIS CONGENITAL [None]
  - VENTRICULAR HYPERTROPHY [None]
  - VENTRICULAR SEPTAL DEFECT [None]
